FAERS Safety Report 13597921 (Version 1)
Quarter: 2017Q2

REPORT INFORMATION
  Report Type: Spontaneous
  Country: JP (occurrence: JP)
  Receive Date: 20170531
  Receipt Date: 20170531
  Transmission Date: 20170830
  Serious: Yes (Other)
  Sender: FDA-Public Use
  Company Number: JP-TEVA-2017-JP-001603J

PATIENT
  Age: 84 Year
  Sex: Female

DRUGS (1)
  1. CERCINE [Suspect]
     Active Substance: DIAZEPAM
     Indication: MALAISE
     Route: 041

REACTIONS (3)
  - Oxygen saturation decreased [Unknown]
  - Product preparation error [Unknown]
  - Arrhythmia [Unknown]

NARRATIVE: CASE EVENT DATE: 20170519
